FAERS Safety Report 4883127-X (Version None)
Quarter: 2006Q1

REPORT INFORMATION
  Report Type: 
  Country: None (occurrence: None)
  Receive Date: 20060117
  Receipt Date: 20060117
  Transmission Date: 20060701
  Serious: Yes (Hospitalization)
  Sender: FDA-Public Use
  Company Number: None

PATIENT
  Age: 42 Year
  Sex: Male
  Weight: 84 kg

DRUGS (3)
  1. BEVACIZUMAB [Suspect]
     Indication: GASTRIC CANCER
     Dosage: 15MG/KG   Q 21 D   IV DRIP
     Route: 041
     Dates: start: 20051221, end: 20060111
  2. OXALIPLATIN [Suspect]
     Indication: GASTRIC CANCER
     Dosage: 75MG/M2    Q 21 D    IV DRIP
     Route: 041
     Dates: start: 20051221, end: 20060111
  3. DOCETAXEL [Suspect]
     Indication: GASTRIC CANCER
     Dosage: 70MG/M2   Q 21 D   IV DRIP
     Route: 041
     Dates: start: 20051221, end: 20060111

REACTIONS (1)
  - GASTROINTESTINAL PERFORATION [None]
